FAERS Safety Report 7767127-8 (Version None)
Quarter: 2011Q3

REPORT INFORMATION
  Report Type: 
  Country: None (occurrence: None)
  Receive Date: 20110922
  Receipt Date: 20100827
  Transmission Date: 20111222
  Serious: No
  Sender: FDA-Public Use
  Company Number: US-ASTRAZENECA-2008UW08908

PATIENT
  Age: 19491 Day
  Sex: Female
  Weight: 81.2 kg

DRUGS (8)
  1. SEROQUEL [Suspect]
     Indication: SLEEP DISORDER
     Dosage: 100 MG TO 600 MG
     Route: 048
     Dates: start: 20030702, end: 20060701
  2. ZYPREXA [Concomitant]
     Indication: DEPRESSION
     Route: 048
     Dates: start: 20031006, end: 20060614
  3. ZYPREXA [Concomitant]
     Dates: start: 20040420, end: 20050808
  4. SEROQUEL [Suspect]
     Indication: DEPRESSION
     Dosage: 100 MG TO 600 MG
     Route: 048
     Dates: start: 20030702, end: 20060701
  5. SEROQUEL [Suspect]
     Route: 048
     Dates: start: 20031006, end: 20060614
  6. ZYPREXA [Concomitant]
     Indication: SLEEP DISORDER
     Route: 048
     Dates: start: 20031006, end: 20060614
  7. ZYPREXA [Concomitant]
     Dates: start: 20040420, end: 20050808
  8. SEROQUEL [Suspect]
     Route: 048
     Dates: start: 20031006, end: 20060614

REACTIONS (3)
  - BLOOD TRIGLYCERIDES INCREASED [None]
  - DIABETIC COMPLICATION [None]
  - TYPE 2 DIABETES MELLITUS [None]
